FAERS Safety Report 4823762-8 (Version None)
Quarter: 2005Q4

REPORT INFORMATION
  Report Type: 
  Country: None (occurrence: None)
  Receive Date: 20051107
  Receipt Date: 20041209
  Transmission Date: 20060501
  Serious: Yes (Hospitalization)
  Sender: FDA-Public Use
  Company Number: 2004BI000547

PATIENT
  Age: 43 Year
  Sex: Female
  Weight: 156.491 kg

DRUGS (1)
  1. AVONEX [Suspect]
     Indication: MULTIPLE SCLEROSIS
     Dosage: 30 UG; QW; IM
     Route: 030
     Dates: start: 20040901

REACTIONS (2)
  - LIGAMENT RUPTURE [None]
  - PYREXIA [None]
